FAERS Safety Report 5027905-5 (Version None)
Quarter: 2006Q2

REPORT INFORMATION
  Report Type: 
  Country: None (occurrence: None)
  Receive Date: 20060616
  Receipt Date: 20060605
  Transmission Date: 20061013
  Serious: Yes (Hospitalization)
  Sender: FDA-Public Use
  Company Number: IT-MERCK-0606USA01560

PATIENT
  Age: 79 Year
  Sex: Female

DRUGS (1)
  1. MODURETIC 5-50 [Suspect]
     Route: 065

REACTIONS (2)
  - LICHENOID KERATOSIS [None]
  - SKIN REACTION [None]
